FAERS Safety Report 17875942 (Version 1)
Quarter: 2020Q2

REPORT INFORMATION
  Report Type: Report from Study
  Country: US (occurrence: US)
  Receive Date: 20200609
  Receipt Date: 20200609
  Transmission Date: 20200714
  Serious: Yes (Other)
  Sender: FDA-Public Use
  Company Number: US-TEVA-2020-US-1245359

PATIENT
  Sex: Female

DRUGS (4)
  1. CISPLATIN. [Suspect]
     Active Substance: CISPLATIN
     Indication: SQUAMOUS CELL CARCINOMA
     Route: 065
  2. CONJUGATED ESTROGEN [Suspect]
     Active Substance: ESTROGENS, CONJUGATED
     Indication: MENOPAUSAL SYMPTOMS
  3. CONJUGATED ESTROGEN [Suspect]
     Active Substance: ESTROGENS, CONJUGATED
     Indication: GENITOURINARY SYMPTOM
     Dosage: RECEIVED 0.625 MG/1G TWICE IN A WEEK
     Route: 067
  4. CISPLATIN. [Suspect]
     Active Substance: CISPLATIN
     Indication: CERVIX CARCINOMA STAGE III

REACTIONS (3)
  - Genitourinary symptom [Unknown]
  - Menopausal symptoms [Unknown]
  - Uterine cancer [Unknown]
